FAERS Safety Report 14688063 (Version 4)
Quarter: 2018Q2

REPORT INFORMATION
  Report Type: Spontaneous
  Country: US (occurrence: US)
  Receive Date: 20180328
  Receipt Date: 20180425
  Transmission Date: 20180711
  Serious: No
  Sender: FDA-Public Use
  Company Number: US-PFIZER INC-2018128129

PATIENT
  Age: 86 Year
  Sex: Female
  Weight: 62.13 kg

DRUGS (3)
  1. LYRICA [Suspect]
     Active Substance: PREGABALIN
     Indication: POST HERPETIC NEURALGIA
     Dosage: 75 UNK, 1 IN THE MORNING, 1 MID-AFTERNOON AND 1 IN THE EVENING
     Route: 048
     Dates: start: 201712
  2. TRAMADOL. [Concomitant]
     Active Substance: TRAMADOL
     Dosage: 200 MG, DAILY (I TAKE 2 IN THE MORNING 1 AT MID DAY AND 1 AT NIGHT)
     Route: 048
     Dates: start: 201712
  3. LYRICA [Suspect]
     Active Substance: PREGABALIN
     Indication: NEURALGIA

REACTIONS (12)
  - Balance disorder [Recovering/Resolving]
  - Loss of personal independence in daily activities [Unknown]
  - Fatigue [Recovering/Resolving]
  - Somnolence [Recovering/Resolving]
  - Rash [Unknown]
  - Malaise [Recovering/Resolving]
  - Disturbance in attention [Unknown]
  - Peripheral swelling [Unknown]
  - Dyskinesia [Unknown]
  - Nausea [Recovering/Resolving]
  - Confusional state [Recovering/Resolving]
  - Weight increased [Unknown]
